FAERS Safety Report 17797939 (Version 2)
Quarter: 2020Q2

REPORT INFORMATION
  Report Type: Spontaneous
  Country: US (occurrence: US)
  Receive Date: 20200518
  Receipt Date: 20200605
  Transmission Date: 20200714
  Serious: No
  Sender: FDA-Public Use
  Company Number: US-PFIZER INC-2020195644

PATIENT
  Age: 57 Year
  Sex: Female

DRUGS (2)
  1. IBRANCE [Suspect]
     Active Substance: PALBOCICLIB
     Dosage: 125MG, UNK
     Dates: start: 20200129
  2. IBRANCE [Suspect]
     Active Substance: PALBOCICLIB
     Dosage: 125MG, UNK
     Dates: start: 20200203

REACTIONS (5)
  - Diarrhoea [Unknown]
  - Product dose omission [Unknown]
  - Epistaxis [Unknown]
  - Blister [Unknown]
  - Rash [Unknown]

NARRATIVE: CASE EVENT DATE: 2020
